FAERS Safety Report 16387762 (Version 1)
Quarter: 2019Q2

REPORT INFORMATION
  Report Type: Spontaneous
  Country: US (occurrence: US)
  Receive Date: 20190604
  Receipt Date: 20190604
  Transmission Date: 20190711
  Serious: No
  Sender: FDA-Public Use
  Company Number: US-ALLERGAN-1909656US

PATIENT
  Age: 8 Year
  Sex: Female

DRUGS (1)
  1. CONDYLOX [Suspect]
     Active Substance: PODOFILOX
     Indication: MOLLUSCUM CONTAGIOSUM
     Dosage: UNK
     Dates: end: 20190301

REACTIONS (3)
  - Application site pruritus [Recovering/Resolving]
  - Off label use [Unknown]
  - Application site urticaria [Recovering/Resolving]

NARRATIVE: CASE EVENT DATE: 20190302
